FAERS Safety Report 20943027 (Version 1)
Quarter: 2022Q2

REPORT INFORMATION
  Report Type: Report from Study
  Country: US (occurrence: US)
  Receive Date: 20220610
  Receipt Date: 20220610
  Transmission Date: 20220720
  Serious: Yes (Hospitalization)
  Sender: FDA-Public Use
  Company Number: US-SUN PHARMACEUTICAL INDUSTRIES LTD-2022R1-339969

PATIENT
  Age: 30 Year
  Sex: Male

DRUGS (3)
  1. KETOROLAC [Suspect]
     Active Substance: KETOROLAC TROMETHAMINE
     Indication: Fibula fracture
     Dosage: 1 DOSE
     Route: 042
  2. NAPROXEN [Suspect]
     Active Substance: NAPROXEN
     Indication: Fibula fracture
     Dosage: 440 MILLIGRAM/ 2 DOSES
     Route: 065
  3. NAPROXEN [Suspect]
     Active Substance: NAPROXEN
     Dosage: 220 MILLIGRAM
     Route: 065

REACTIONS (1)
  - Acute kidney injury [Recovered/Resolved]
